FAERS Safety Report 24382312 (Version 2)
Quarter: 2025Q3

REPORT INFORMATION
  Report Type: Spontaneous
  Country: AU (occurrence: AU)
  Receive Date: 20241001
  Receipt Date: 20250816
  Transmission Date: 20251020
  Serious: Yes (Hospitalization, Other)
  Sender: ALEXION PHARMACEUTICALS
  Company Number: AU-ASTRAZENECA-202409GLO001714AU

PATIENT
  Age: 83 Year
  Sex: Female

DRUGS (2)
  1. CANDESARTAN [Suspect]
     Active Substance: CANDESARTAN
  2. THYROXINE [Concomitant]
     Active Substance: LEVOTHYROXINE

REACTIONS (4)
  - Sepsis [Unknown]
  - Diarrhoea [Recovering/Resolving]
  - Hypotension [Unknown]
  - Atrial fibrillation [Unknown]
